FAERS Safety Report 9628951 (Version 4)
Quarter: 2014Q1

REPORT INFORMATION
  Report Type: Spontaneous
  Country: US (occurrence: US)
  Receive Date: 20131017
  Receipt Date: 20140207
  Transmission Date: 20141002
  Serious: No
  Sender: FDA-Public Use
  Company Number: US-PFIZER INC-2013295987

PATIENT
  Age: 52 Year
  Sex: Female

DRUGS (2)
  1. LIPITOR [Suspect]
     Dosage: UNK
  2. PRAVASTATIN SODIUM [Suspect]
     Dosage: UNK

REACTIONS (1)
  - Myalgia [Unknown]
